FAERS Safety Report 9698229 (Version 1)
Quarter: 2013Q4

REPORT INFORMATION
  Report Type: Report from Study
  Country: CA (occurrence: CA)
  Receive Date: 20131120
  Receipt Date: 20131120
  Transmission Date: 20140711
  Serious: Yes (Hospitalization)
  Sender: FDA-Public Use
  Company Number: CA-009507513-1311CAN006394

PATIENT
  Sex: Male

DRUGS (8)
  1. PEGINTERFERON ALFA-2B [Suspect]
     Indication: HEPATITIS C
     Dosage: 150 MICROGRAM, QW
     Route: 058
     Dates: start: 20130812, end: 20131029
  2. RIBAVIRIN [Suspect]
     Indication: HEPATITIS C
     Dosage: 1400 MG QD
     Route: 048
     Dates: start: 20130812
  3. RIBAVIRIN [Suspect]
     Dosage: 1000 MG
     Route: 048
     Dates: end: 20131029
  4. METHADONE HYDROCHLORIDE [Concomitant]
     Indication: OPIATES
     Dosage: 85 ML, QD
     Route: 048
  5. ZOPICLONE [Concomitant]
     Indication: INSOMNIA
     Dosage: 11.25 MG QD
     Route: 048
  6. TRAZODONE HYDROCHLORIDE [Concomitant]
     Indication: INSOMNIA
     Dosage: 50 MG, QD
     Route: 048
  7. ESCITALOPRAM [Concomitant]
     Indication: DEPRESSION
     Dosage: 10 MG, QD
     Route: 048
  8. NABILONE [Concomitant]
     Indication: ANTIEMETIC SUPPORTIVE CARE
     Dosage: 1 MG, TID
     Route: 048
     Dates: start: 2013

REACTIONS (1)
  - Vomiting [Recovering/Resolving]
